FAERS Safety Report 8509772-8 (Version None)
Quarter: 2012Q2

REPORT INFORMATION
  Report Type: 
  Country: None (occurrence: None)
  Receive Date: 20120405
  Receipt Date: 20090522
  Transmission Date: 20120825
  Serious: Yes (Other)
  Sender: FDA-Public Use
  Company Number: PHEH2009US05223

PATIENT
  Sex: Female

DRUGS (9)
  1. ASPIRIN [Concomitant]
  2. STOOL SOFTENER (DOCUSATE SODIUM) [Concomitant]
  3. HORMONES NOS (NO INGREDIENTS/SUBSTANCES) [Concomitant]
  4. NSPECIFIED NERVE PILL [Concomitant]
  5. ANXIOLYTICS (NO INGREDIENTS/SUBSTANCES) [Concomitant]
  6. ZENEX [Concomitant]
  7. RECLAST [Suspect]
     Dosage: UNK, INFUSION
     Dates: start: 20090501
  8. EYE VITAMINS [Concomitant]
  9. LIPITOR [Concomitant]

REACTIONS (4)
  - BLOOD CALCIUM DECREASED [None]
  - ERYTHEMA [None]
  - POOR PERIPHERAL CIRCULATION [None]
  - OEDEMA PERIPHERAL [None]
